FAERS Safety Report 6497009-3 (Version None)
Quarter: 2009Q4

REPORT INFORMATION
  Report Type: 
  Country: None (occurrence: None)
  Receive Date: 20091215
  Receipt Date: 20081222
  Transmission Date: 20100525
  Serious: No
  Sender: FDA-Public Use
  Company Number: A0761410A

PATIENT
  Age: 81 Year
  Sex: Male

DRUGS (20)
  1. AVODART [Suspect]
     Indication: BENIGN PROSTATIC HYPERPLASIA
     Dosage: 1CAP PER DAY
     Route: 048
     Dates: start: 20080201, end: 20080815
  2. UNKNOWN MEDICATION [Concomitant]
  3. AVASTIN (SIMVASTATIN) [Concomitant]
  4. ALBUTEROL [Concomitant]
  5. SPIRIVA [Concomitant]
  6. ALLOPURINOL [Concomitant]
  7. GLYBURIDE [Concomitant]
  8. ACTOS [Concomitant]
  9. PREVACID [Concomitant]
  10. FUROSEMIDE [Concomitant]
  11. SPIRONOLACTONE [Concomitant]
  12. POTASSIUM [Concomitant]
  13. DETROL LA [Concomitant]
  14. FLOMAX [Concomitant]
  15. ASPIRIN [Concomitant]
  16. FISH OIL [Concomitant]
  17. MULTI-VITAMIN [Concomitant]
  18. ANTIOXIDANT [Concomitant]
  19. TYLENOL [Concomitant]
  20. DIPHENHYDRAMINE HCL [Concomitant]

REACTIONS (3)
  - BREAST ENLARGEMENT [None]
  - BREAST PAIN [None]
  - BREAST TENDERNESS [None]
